FAERS Safety Report 25340108 (Version 1)
Quarter: 2025Q2

REPORT INFORMATION
  Report Type: Spontaneous
  Country: US (occurrence: US)
  Receive Date: 20250521
  Receipt Date: 20250521
  Transmission Date: 20250717
  Serious: No
  Sender: GLAXOSMITHKLINE
  Company Number: US-GSK-US2025AMR061041

PATIENT
  Sex: Female

DRUGS (3)
  1. NUCALA [Suspect]
     Active Substance: MEPOLIZUMAB
     Indication: Chronic sinusitis
     Dosage: 100 MG, Q4W
     Dates: start: 202504
  2. NUCALA [Suspect]
     Active Substance: MEPOLIZUMAB
     Indication: Sinus polyp degeneration
  3. DUPIXENT [Concomitant]
     Active Substance: DUPILUMAB
     Indication: Product used for unknown indication

REACTIONS (1)
  - Drug ineffective [Unknown]
